FAERS Safety Report 24741561 (Version 5)
Quarter: 2025Q2

REPORT INFORMATION
  Report Type: Report from Study
  Country: CA (occurrence: CA)
  Receive Date: 20241217
  Receipt Date: 20250623
  Transmission Date: 20250716
  Serious: Yes (Other)
  Sender: TAKEDA
  Company Number: CA-TAKEDA-2024TUS123274

PATIENT
  Age: 67 Year
  Sex: Male

DRUGS (6)
  1. VEDOLIZUMAB [Suspect]
     Active Substance: VEDOLIZUMAB
     Indication: Colitis ulcerative
  2. VEDOLIZUMAB [Suspect]
     Active Substance: VEDOLIZUMAB
     Dosage: 300 MILLIGRAM, Q4WEEKS
     Dates: start: 20241219
  3. VEDOLIZUMAB [Suspect]
     Active Substance: VEDOLIZUMAB
     Dosage: 300 MILLIGRAM, Q4WEEKS
     Dates: end: 20250508
  4. FENTANYL [Concomitant]
     Active Substance: FENTANYL
  5. MIDAZOLAM [Concomitant]
     Active Substance: MIDAZOLAM
  6. SCOPOLAMINE [Concomitant]
     Active Substance: SCOPOLAMINE

REACTIONS (7)
  - Large intestinal haemorrhage [Unknown]
  - Colitis [Unknown]
  - Large intestinal ulcer [Unknown]
  - Large intestine polyp [Unknown]
  - Gastrointestinal scarring [Unknown]
  - Off label use [Unknown]
  - Drug ineffective [Unknown]

NARRATIVE: CASE EVENT DATE: 20241219
